FAERS Safety Report 16354042 (Version 1)
Quarter: 2019Q2

REPORT INFORMATION
  Report Type: Other
  Country: US (occurrence: US)
  Receive Date: 20190524
  Receipt Date: 20190524
  Transmission Date: 20190711
  Serious: Yes (Other)
  Sender: FDA-Public Use
  Company Number: US-INTERCEPT-PMOCA2018001451

PATIENT

DRUGS (4)
  1. OMEPRAZOLE. [Concomitant]
     Active Substance: OMEPRAZOLE
     Dosage: UNK, QD
  2. URSODIOL. [Concomitant]
     Active Substance: URSODIOL
     Dosage: 300 MG, TID
  3. OCALIVA [Suspect]
     Active Substance: OBETICHOLIC ACID
     Indication: PRIMARY BILIARY CHOLANGITIS
     Dosage: 5 MG, QD
     Route: 048
     Dates: start: 20170518, end: 20171025
  4. OCALIVA [Suspect]
     Active Substance: OBETICHOLIC ACID
     Dosage: 10 MG, QD
     Route: 048
     Dates: start: 20171025, end: 20190415

REACTIONS (6)
  - Blood alkaline phosphatase increased [Not Recovered/Not Resolved]
  - Ecchymosis [Not Recovered/Not Resolved]
  - Spider naevus [Not Recovered/Not Resolved]
  - Palmar erythema [Not Recovered/Not Resolved]
  - Rash vesicular [Not Recovered/Not Resolved]
  - Disease progression [Not Recovered/Not Resolved]
